FAERS Safety Report 8519201-6 (Version None)
Quarter: 2012Q3

REPORT INFORMATION
  Report Type: 
  Country: None (occurrence: None)
  Receive Date: 20120718
  Receipt Date: 20120706
  Transmission Date: 20120928
  Serious: Yes (Hospitalization)
  Sender: FDA-Public Use
  Company Number: US-ELI_LILLY_AND_COMPANY-US201207003141

PATIENT
  Age: 56 Year
  Sex: Female
  Weight: 116.4 kg

DRUGS (5)
  1. TRACLEER [Concomitant]
  2. COUMADIN [Concomitant]
  3. ADCIRCA [Suspect]
  4. REMODULIN [Concomitant]
     Indication: PULMONARY ARTERIAL HYPERTENSION
     Dosage: UNK
     Route: 058
     Dates: start: 20120218
  5. DIURETICS [Concomitant]

REACTIONS (2)
  - PNEUMONIA [None]
  - DYSPNOEA [None]
